FAERS Safety Report 7391437-X (Version None)
Quarter: 2011Q2

REPORT INFORMATION
  Report Type: 
  Country: None (occurrence: None)
  Receive Date: 20110404
  Receipt Date: 20110322
  Transmission Date: 20111010
  Serious: Yes (Other)
  Sender: FDA-Public Use
  Company Number: JP-ALEXION-A201100411

PATIENT
  Age: 60 Year
  Sex: Male

DRUGS (7)
  1. SOLIRIS [Suspect]
     Indication: PAROXYSMAL NOCTURNAL HAEMOGLOBINURIA
     Dosage: 900 MG, Q2W
     Route: 042
     Dates: start: 20080206
  2. RED BLOOD CELLS, CONCENTRATED [Concomitant]
     Dosage: 2 UNITS
     Dates: start: 20070501, end: 20070501
  3. RED BLOOD CELLS, CONCENTRATED [Concomitant]
     Dosage: 2 UNITS
     Dates: start: 20080201, end: 20080201
  4. RED BLOOD CELLS, CONCENTRATED [Concomitant]
     Dosage: 2 UNITS
     Dates: start: 20070101, end: 20070101
  5. RED BLOOD CELLS, CONCENTRATED [Concomitant]
     Dosage: 2 UNITS
     Dates: start: 20071001, end: 20071001
  6. RED BLOOD CELLS, CONCENTRATED [Concomitant]
     Dosage: 2 UNITS
     Dates: start: 20070801, end: 20070801
  7. ARICEPT [Concomitant]
     Dosage: UNK
     Dates: start: 20090108

REACTIONS (2)
  - PANCREATITIS ACUTE [None]
  - EPILEPSY [None]
